FAERS Safety Report 4445859-7 (Version None)
Quarter: 2004Q3

REPORT INFORMATION
  Report Type: 
  Country: None (occurrence: None)
  Receive Date: 20040902
  Receipt Date: 20040823
  Transmission Date: 20050211
  Serious: Yes (Death, Other)
  Sender: FDA-Public Use
  Company Number: 2004EU001589

PATIENT
  Age: 53 Year
  Sex: Male

DRUGS (2)
  1. FK506 (TACROLIMUS)  FORMULATION UNKNOWN [Suspect]
     Indication: RENAL TRANSPLANT
     Dosage: D,
  2. CYCLOSPORINE [Concomitant]

REACTIONS (4)
  - ASPERGILLOSIS [None]
  - DRUG INEFFECTIVE [None]
  - KIDNEY TRANSPLANT REJECTION [None]
  - OXYGEN SATURATION ABNORMAL [None]
